FAERS Safety Report 21320522 (Version 1)
Quarter: 2022Q3

REPORT INFORMATION
  Report Type: Spontaneous
  Country: FR (occurrence: FR)
  Receive Date: 20220911
  Receipt Date: 20220911
  Transmission Date: 20221027
  Serious: Yes (Hospitalization, Other)
  Sender: FDA-Public Use
  Company Number: None

PATIENT
  Age: 70 Year
  Sex: Female
  Weight: 52.3 kg

DRUGS (2)
  1. JARDIANCE [Suspect]
     Active Substance: EMPAGLIFLOZIN
     Indication: Diabetes mellitus
     Dosage: 1 DOSAGE FORM
     Route: 048
     Dates: start: 20220721, end: 20220831
  2. HUMIRA [Concomitant]
     Active Substance: ADALIMUMAB
     Indication: Still^s disease
     Dosage: 1 DOSAGE FORM
     Route: 058
     Dates: start: 201809, end: 20220831

REACTIONS (2)
  - Rash [Recovering/Resolving]
  - Dermatitis bullous [Recovering/Resolving]

NARRATIVE: CASE EVENT DATE: 20220805
